FAERS Safety Report 8217310-2 (Version None)
Quarter: 2012Q1

REPORT INFORMATION
  Report Type: 
  Country: None (occurrence: None)
  Receive Date: 20120319
  Receipt Date: 20120309
  Transmission Date: 20120608
  Serious: No
  Sender: FDA-Public Use
  Company Number: US-PFIZER INC-2012064727

PATIENT
  Sex: Male

DRUGS (6)
  1. CATAPRES [Concomitant]
     Dosage: 0.2 MG, 2X/DAY (TAKE 1 TABLET BY MOUTH 2 (TWO) TIMES DAILY)
     Route: 048
  2. NAPROSYN [Concomitant]
     Dosage: 500 MG, 2X/DAY (TAKE 1 TABLET BY MOUTH 2 (TWO) TIMES DAILY WITH MEALS)
  3. AMLODIPINE BESYLATE/OLMESARTAN MEDOXEMIL [Concomitant]
     Dosage: (10-40 MG PER TABLET, TAKE 1 TABLET BY MOUTH DAILY)
     Route: 048
  4. ASPIRIN [Concomitant]
     Dosage: 81 MG, UNK (TAKE 1 TABLET BY MOUTH DAILY)
     Route: 048
  5. CELEBREX [Suspect]
     Dosage: 200 MG, 2X/DAY (TAKE 1 CAPSULE BY MOUTH 2 (TWO) TIMES DAILY)
     Route: 048
  6. LIPITOR [Suspect]
     Dosage: 40 MG, UNK (TAKE 1 TABLET BY MOUTH NIGHTLY)
     Route: 048

REACTIONS (4)
  - HYPERTENSION [None]
  - BLOOD CHOLESTEROL INCREASED [None]
  - MUSCULOSKELETAL PAIN [None]
  - ARTHRALGIA [None]
